FAERS Safety Report 20123790 (Version 1)
Quarter: 2021Q4

REPORT INFORMATION
  Report Type: Spontaneous
  Country: US (occurrence: US)
  Receive Date: 20211129
  Receipt Date: 20211129
  Transmission Date: 20220303
  Serious: No
  Sender: FDA-Public Use
  Company Number: US-UCBSA-2020053426

PATIENT

DRUGS (1)
  1. VIMPAT [Suspect]
     Active Substance: LACOSAMIDE
     Indication: Seizure
     Dosage: MEAN LOADING DOSE OF 4.5 MG PER KG AND MEAN MAITANENCE DOSE OF 7 MG PER KG
     Route: 042

REACTIONS (1)
  - No adverse event [Unknown]
